FAERS Safety Report 4723716-6 (Version None)
Quarter: 2005Q3

REPORT INFORMATION
  Report Type: 
  Country: None (occurrence: None)
  Receive Date: 20050725
  Receipt Date: 20050711
  Transmission Date: 20060218
  Serious: Yes (Other)
  Sender: FDA-Public Use
  Company Number: JP-JNJFOC-20041203587

PATIENT
  Age: 49 Year
  Sex: Male
  Weight: 63.8 kg

DRUGS (7)
  1. CLADRIBINE [Suspect]
     Route: 050
     Dates: start: 19981202, end: 19990207
  2. CLADRIBINE [Suspect]
     Indication: B-CELL LYMPHOMA
     Route: 050
     Dates: start: 19981202, end: 19990207
  3. CLADRIBINE [Suspect]
     Dosage: 7 CONSECUTIVE DAYS, EVERY 4 WEEKS, UP TO A MAXIMUM OF 6 CYCLES
     Route: 050
     Dates: start: 19981202, end: 19990207
  4. CYCLOPHOSPHAMIDE [Suspect]
     Indication: LYMPHOMA
     Dates: start: 19971025, end: 19980313
  5. DOXORUBICIN [Suspect]
     Indication: LYMPHOMA
     Dates: start: 19971025, end: 19980313
  6. PREDNISONE [Suspect]
     Indication: LYMPHOMA
     Dates: start: 19971025, end: 19980313
  7. VINCRISTINE SULFATE [Suspect]
     Indication: LYMPHOMA
     Dates: start: 19971025, end: 19980313

REACTIONS (1)
  - MYELODYSPLASTIC SYNDROME [None]
